FAERS Safety Report 10081637 (Version 1)
Quarter: 2014Q2

REPORT INFORMATION
  Report Type: Spontaneous
  Country: US (occurrence: US)
  Receive Date: 20140416
  Receipt Date: 20140416
  Transmission Date: 20141212
  Serious: No
  Sender: FDA-Public Use
  Company Number: US-B.I. PHARMACEUTICALS,INC./RIDGEFIELD-2014-BI-15501BP

PATIENT
  Age: 61 Year
  Sex: Male
  Weight: 100 kg

DRUGS (2)
  1. SPIRIVA [Suspect]
     Indication: CHRONIC OBSTRUCTIVE PULMONARY DISEASE
     Dosage: 18 MCG
     Route: 048
     Dates: start: 201301
  2. ALBUTEROL [Concomitant]
     Dosage: FORMULATION: INHALATION SPRAY
     Route: 055

REACTIONS (4)
  - Cough [Unknown]
  - Nasal congestion [Unknown]
  - Bronchitis [Unknown]
  - Overdose [Recovered/Resolved]
